FAERS Safety Report 8042892-3 (Version None)
Quarter: 2012Q1

REPORT INFORMATION
  Report Type: 
  Country: None (occurrence: None)
  Receive Date: 20120112
  Receipt Date: 20120109
  Transmission Date: 20120608
  Serious: Yes (Hospitalization, Congenital Anomaly, Other)
  Sender: FDA-Public Use
  Company Number: US-PFIZER INC-2010092578

PATIENT
  Sex: Male
  Weight: 3.3 kg

DRUGS (5)
  1. AMBIEN [Concomitant]
     Dosage: UNK
     Route: 064
  2. MULTI-VITAMINS [Concomitant]
     Dosage: UNK
     Route: 064
  3. XANAX [Concomitant]
     Indication: ANXIETY
     Dosage: 0.25 MG, A? -1 TABLET 2X/DAY
     Route: 064
     Dates: start: 20060613
  4. ZOLOFT [Suspect]
     Indication: ANXIETY
     Dosage: 50 MG, 1X/DAY
     Route: 064
     Dates: start: 20060613
  5. ZOLOFT [Suspect]
     Indication: DEPRESSION

REACTIONS (18)
  - PATENT DUCTUS ARTERIOSUS [None]
  - ATRIAL SEPTAL DEFECT [None]
  - GASTROENTERITIS [None]
  - CARDIOMEGALY [None]
  - CRYPTORCHISM [None]
  - CROUP INFECTIOUS [None]
  - CARDIAC FAILURE CONGESTIVE [None]
  - VIRAL INFECTION [None]
  - DERMATITIS ATOPIC [None]
  - RESPIRATORY DISORDER [None]
  - ACUTE RESPIRATORY DISTRESS SYNDROME [None]
  - PREPUCE REDUNDANT [None]
  - DERMATITIS CONTACT [None]
  - FOETAL EXPOSURE DURING PREGNANCY [None]
  - HEART DISEASE CONGENITAL [None]
  - FAILURE TO THRIVE [None]
  - SPEECH DISORDER [None]
  - UPPER RESPIRATORY TRACT INFECTION [None]
